FAERS Safety Report 5311344-3 (Version None)
Quarter: 2007Q2

REPORT INFORMATION
  Report Type: 
  Country: None (occurrence: None)
  Receive Date: 20070423
  Receipt Date: 20070416
  Transmission Date: 20071010
  Serious: Yes (Death, Life-Threatening)
  Sender: FDA-Public Use
  Company Number: 2007-157360-NL

PATIENT
  Age: 92 Year
  Sex: Male

DRUGS (4)
  1. MIRTAZAPINE [Suspect]
     Dosage: 15 MG ORAL
     Route: 048
     Dates: end: 20060802
  2. DI-ANTALVIC [Suspect]
     Dosage: 6 DF ORAL
     Route: 048
     Dates: end: 20060727
  3. OXAZEPAM [Suspect]
     Dosage: 1 DF ORAL
     Route: 048
     Dates: end: 20060727
  4. PANTOPRAZOLE SODIUM [Suspect]
     Dosage: 1 DF ORAL
     Route: 048

REACTIONS (5)
  - CONDITION AGGRAVATED [None]
  - DEHYDRATION [None]
  - FALL [None]
  - HEAD INJURY [None]
  - RENAL FAILURE [None]
